FAERS Safety Report 5754008-4 (Version None)
Quarter: 2008Q2

REPORT INFORMATION
  Report Type: 
  Country: None (occurrence: None)
  Receive Date: 20080521
  Receipt Date: 20080521
  Transmission Date: 20081010
  Serious: Yes (Life-Threatening, Hospitalization)
  Sender: FDA-Public Use
  Company Number: None

PATIENT
  Age: 34 Year
  Sex: Male
  Weight: 117.9352 kg

DRUGS (1)
  1. ALEVE [Suspect]
     Dosage: 440MG ONCE PO
     Route: 048

REACTIONS (2)
  - ANAPHYLACTIC SHOCK [None]
  - DRUG HYPERSENSITIVITY [None]
